FAERS Safety Report 11689640 (Version 1)
Quarter: 2015Q4

REPORT INFORMATION
  Report Type: Spontaneous
  Country: NO (occurrence: NO)
  Receive Date: 20151102
  Receipt Date: 20151102
  Transmission Date: 20160304
  Serious: Yes (Other)
  Sender: FDA-Public Use
  Company Number: NO-PFIZER INC-2015365252

PATIENT
  Age: 35 Year
  Sex: Female
  Weight: 53 kg

DRUGS (1)
  1. DEPO-PROVERA [Suspect]
     Active Substance: MEDROXYPROGESTERONE ACETATE
     Indication: CONTRACEPTION
     Dosage: UNK
     Dates: start: 2002, end: 2015

REACTIONS (3)
  - Fall [Unknown]
  - Osteoporosis [Unknown]
  - Tibia fracture [Unknown]

NARRATIVE: CASE EVENT DATE: 20140116
